FAERS Safety Report 5553693-X (Version None)
Quarter: 2007Q4

REPORT INFORMATION
  Report Type: 
  Country: None (occurrence: None)
  Receive Date: 20071213
  Receipt Date: 20071204
  Transmission Date: 20080405
  Serious: Yes (Other)
  Sender: FDA-Public Use
  Company Number: US-ROCHE-535008

PATIENT
  Age: 70 Year
  Sex: Female

DRUGS (9)
  1. BONIVA [Suspect]
     Indication: OSTEOARTHRITIS
     Dosage: STOPPED TAKING THE TABLET FOR TWO MONTHS
     Route: 048
     Dates: start: 20051201, end: 20070901
  2. BONIVA [Suspect]
     Route: 048
     Dates: start: 20071128
  3. AVAPRO [Concomitant]
     Dosage: DRUG REPORTED AS AVAPOR
  4. BETAPACE [Concomitant]
  5. DYAZIDE [Concomitant]
     Dosage: DRUG REPORTED AS DIAZYDE
  6. TOPROL-XL [Concomitant]
  7. WARFARIN SODIUM [Concomitant]
  8. AMBIEN [Concomitant]
  9. AMOXICILLIN [Concomitant]

REACTIONS (1)
  - PAIN IN JAW [None]
